FAERS Safety Report 23011014 (Version 5)
Quarter: 2023Q4

REPORT INFORMATION
  Report Type: Report from Study
  Country: US (occurrence: US)
  Receive Date: 20230929
  Receipt Date: 20231117
  Transmission Date: 20240110
  Serious: Yes (Hospitalization)
  Sender: FDA-Public Use
  Company Number: US-SAREPTA THERAPEUTICS INC.-SRP2023-003819

PATIENT
  Age: 8 Year
  Sex: Male
  Weight: 49.9 kg

DRUGS (22)
  1. INVESTIGATIONAL PRODUCT [Suspect]
     Active Substance: INVESTIGATIONAL PRODUCT
     Indication: Duchenne muscular dystrophy
     Dosage: 66.5 X10E14 VG
     Route: 042
     Dates: start: 20230808, end: 20230808
  2. PLACEBO [Suspect]
     Active Substance: UNSPECIFIED INGREDIENT
     Indication: Duchenne muscular dystrophy
     Dosage: 66.5 X10E14 VG
     Route: 042
     Dates: start: 20230808, end: 20230808
  3. DELANDISTROGENE MOXEPARVOVEC [Suspect]
     Active Substance: DELANDISTROGENE MOXEPARVOVEC
     Indication: Duchenne muscular dystrophy
     Dosage: 66.5 X10E14 VG
     Route: 042
     Dates: start: 20230808, end: 20230808
  4. INVESTIGATIONAL PRODUCT [Suspect]
     Active Substance: INVESTIGATIONAL PRODUCT
     Dosage: UNK, SINGLE
     Dates: start: 20220809, end: 20220809
  5. PLACEBO [Suspect]
     Active Substance: UNSPECIFIED INGREDIENT
     Dosage: UNK, SINGLE
     Dates: start: 20220809, end: 20220809
  6. DELANDISTROGENE MOXEPARVOVEC [Suspect]
     Active Substance: DELANDISTROGENE MOXEPARVOVEC
     Dosage: UNK, SINGLE
     Dates: start: 20220809, end: 20220809
  7. PREDNISONE [Concomitant]
     Active Substance: PREDNISONE
     Indication: Duchenne muscular dystrophy
     Dosage: 20 MILLIGRAM, QD
     Route: 048
     Dates: start: 20211116
  8. PREDNISONE [Concomitant]
     Active Substance: PREDNISONE
     Indication: Steroid therapy
     Dosage: 40 MILLIGRAM, QD
     Route: 048
     Dates: start: 20220808, end: 20221010
  9. PREDNISONE [Concomitant]
     Active Substance: PREDNISONE
     Indication: Adverse event
     Dosage: 30 MILLIGRAM, QD
     Route: 048
     Dates: start: 20221011, end: 20221017
  10. PREDNISONE [Concomitant]
     Active Substance: PREDNISONE
     Dosage: 20 MILLIGRAM, QD
     Route: 048
     Dates: start: 20221018, end: 20221024
  11. PREDNISONE [Concomitant]
     Active Substance: PREDNISONE
     Dosage: 10 MILLIGRAM, QD
     Route: 048
     Dates: start: 20221025, end: 20221031
  12. PREDNISONE [Concomitant]
     Active Substance: PREDNISONE
     Dosage: 40 MILLIGRAM, QD
     Route: 048
     Dates: start: 20230807, end: 20230917
  13. PREDNISONE [Concomitant]
     Active Substance: PREDNISONE
     Dosage: 80 MILLIGRAM, QD
     Route: 048
     Dates: start: 20230918, end: 20230919
  14. PREDNISONE [Concomitant]
     Active Substance: PREDNISONE
     Dosage: 100 MILLIGRAM, QD
     Route: 048
     Dates: start: 20230920
  15. VITAMIN D NOS [Concomitant]
     Active Substance: VITAMIN D NOS
     Indication: Supplementation therapy
     Dosage: 1000 INTERNATIONAL UNIT, QD
     Route: 048
     Dates: start: 20220101
  16. FLONASE [Concomitant]
     Active Substance: FLUTICASONE PROPIONATE
     Indication: Seasonal allergy
     Dosage: 1-2 SPRAYS, PRN
     Route: 045
     Dates: start: 20220917
  17. ZOFRAN [Concomitant]
     Active Substance: ONDANSETRON HYDROCHLORIDE
     Indication: Malaise
     Dosage: 4 MILLIGRAM, SINGLE
     Route: 048
     Dates: start: 20230812, end: 20230812
  18. IBUPROFEN [Concomitant]
     Active Substance: IBUPROFEN
     Indication: Pyrexia
     Dosage: 200 MILLIGRAM, SINGLE
     Route: 048
     Dates: start: 20230812, end: 20230812
  19. IBUPROFEN [Concomitant]
     Active Substance: IBUPROFEN
     Indication: Headache
     Dosage: 200-400 MG, PRN
     Route: 048
     Dates: start: 20230823, end: 20230905
  20. IBUPROFEN [Concomitant]
     Active Substance: IBUPROFEN
     Dosage: 200-400 MG, PRN
     Route: 048
     Dates: start: 20230906
  21. ACETAMINOPHEN [Concomitant]
     Active Substance: ACETAMINOPHEN
     Indication: Pyrexia
     Dosage: 500 MILLIGRAM, SINGLE
     Route: 048
     Dates: start: 20230812, end: 20230812
  22. GUAIFENESIN [Concomitant]
     Active Substance: GUAIFENESIN
     Indication: Upper respiratory tract infection
     Dosage: 1200 MILLIGRAM, PRN
     Route: 048
     Dates: start: 20230913, end: 20230916

REACTIONS (1)
  - Liver injury [Not Recovered/Not Resolved]

NARRATIVE: CASE EVENT DATE: 20230918
